FAERS Safety Report 12728991 (Version 3)
Quarter: 2016Q3

REPORT INFORMATION
  Report Type: Spontaneous
  Country: US (occurrence: US)
  Receive Date: 20160909
  Receipt Date: 20160929
  Transmission Date: 20161109
  Serious: Yes (Other)
  Sender: FDA-Public Use
  Company Number: US-LUNDBECK-DKLU2018511

PATIENT
  Age: 45 Year
  Sex: Female

DRUGS (2)
  1. NORTHERA [Suspect]
     Active Substance: DROXIDOPA
     Indication: ORTHOSTATIC HYPOTENSION
     Route: 065
     Dates: start: 20160818
  2. NORTHERA [Suspect]
     Active Substance: DROXIDOPA
     Dosage: SCHEDULE C TITRATION COMPLETE
     Route: 065

REACTIONS (10)
  - Neck pain [Unknown]
  - Dizziness [Unknown]
  - Asthenia [Unknown]
  - Headache [Unknown]
  - Loss of consciousness [Unknown]
  - Fall [Unknown]
  - Musculoskeletal stiffness [Unknown]
  - Muscle spasms [Unknown]
  - Hypertonia [Unknown]
  - Fatigue [Unknown]

NARRATIVE: CASE EVENT DATE: 20160818
